FAERS Safety Report 5685193-0 (Version None)
Quarter: 2008Q1

REPORT INFORMATION
  Report Type: 
  Country: None (occurrence: None)
  Receive Date: 20080328
  Receipt Date: 20080319
  Transmission Date: 20080703
  Serious: Yes (Other)
  Sender: FDA-Public Use
  Company Number: US-ABBOTT-08P-163-0443396-00

PATIENT
  Age: 23 Year
  Sex: Male
  Weight: 33 kg

DRUGS (5)
  1. VICODIN [Suspect]
     Indication: DRUG USE FOR UNKNOWN INDICATION
     Dates: start: 20080201
  2. PREGABALIN [Suspect]
     Indication: TESTICULAR PAIN
     Route: 048
  3. LORAZEPAM [Suspect]
     Indication: DRUG USE FOR UNKNOWN INDICATION
     Dates: start: 20080214, end: 20080214
  4. LORAZEPAM [Suspect]
  5. LORAZEPAM [Suspect]

REACTIONS (4)
  - DRUG ABUSE [None]
  - EUPHORIC MOOD [None]
  - INTENTIONAL DRUG MISUSE [None]
  - MULTIPLE DRUG OVERDOSE [None]
